FAERS Safety Report 12780220 (Version 1)
Quarter: 2016Q3

REPORT INFORMATION
  Report Type: Spontaneous
  Country: JP (occurrence: JP)
  Receive Date: 20160926
  Receipt Date: 20160926
  Transmission Date: 20161109
  Serious: Yes (Other)
  Sender: FDA-Public Use
  Company Number: JP-ELI_LILLY_AND_COMPANY-JP201609007504

PATIENT
  Sex: Male

DRUGS (1)
  1. HUMULIN 70/30 [Suspect]
     Active Substance: INSULIN HUMAN
     Indication: PRODUCT USED FOR UNKNOWN INDICATION
     Dosage: 8 IU, QD
     Route: 058

REACTIONS (6)
  - Blood glucose increased [Unknown]
  - Weight decreased [Unknown]
  - Drug ineffective [Unknown]
  - Hypoglycaemia [Unknown]
  - Expired device used [Unknown]
  - Eye injury [Recovered/Resolved]

NARRATIVE: CASE EVENT DATE: 2016
